FAERS Safety Report 19514950 (Version 1)
Quarter: 2021Q3

REPORT INFORMATION
  Report Type: Spontaneous
  Country: CH (occurrence: CH)
  Receive Date: 20210709
  Receipt Date: 20210709
  Transmission Date: 20211014
  Serious: Yes (Hospitalization)
  Sender: FDA-Public Use
  Company Number: CH-TEVA-2021-CH-1929347

PATIENT
  Age: 70 Year
  Sex: Female

DRUGS (4)
  1. OPDIVO [Suspect]
     Active Substance: NIVOLUMAB
     Indication: NON-SMALL CELL LUNG CANCER
     Dosage: 180 MG (3 MG/KG)?IV INFUSION
     Route: 042
     Dates: start: 20210308, end: 20210308
  2. YERVOY [Suspect]
     Active Substance: IPILIMUMAB
     Indication: NON-SMALL CELL LUNG CANCER
     Dosage: 60 MG (1MG/KG)
     Route: 042
     Dates: start: 20210308, end: 20210308
  3. ORFIRIL [Suspect]
     Active Substance: VALPROATE SODIUM
     Indication: EPILEPSY
     Dosage: ORFIRIL SIROP , UNIT DOSE : 1000 MG
     Route: 048
     Dates: start: 202102, end: 20210515
  4. NOPIL [Suspect]
     Active Substance: SULFAMETHOXAZOLE\TRIMETHOPRIM
     Indication: PROPHYLAXIS
     Dosage: NOPIL 800/160 , UNIT DOSE : 1 DF
     Route: 048
     Dates: start: 202104, end: 20210515

REACTIONS (2)
  - Hepatitis acute [Recovering/Resolving]
  - Hepatic enzyme increased [Recovering/Resolving]

NARRATIVE: CASE EVENT DATE: 20210514
